FAERS Safety Report 20003890 (Version 2)
Quarter: 2021Q4

REPORT INFORMATION
  Report Type: Spontaneous
  Country: DE (occurrence: DE)
  Receive Date: 20211027
  Receipt Date: 20211105
  Transmission Date: 20220303
  Serious: Yes (Hospitalization, Other)
  Sender: FDA-Public Use
  Company Number: DE-BRISTOL-MYERS SQUIBB COMPANY-BMS-2021-062092

PATIENT
  Age: 80 Year
  Sex: Female
  Weight: 85 kg

DRUGS (3)
  1. TORSEMIDE [Suspect]
     Active Substance: TORSEMIDE
     Indication: Dyspnoea exertional
     Dosage: UNK UNK, QD
     Route: 065
  2. ELIQUIS [Suspect]
     Active Substance: APIXABAN
     Indication: Embolism arterial
     Dosage: 5 MILLIGRAM, QD (2.5 MILLIGRAM, BID)
     Route: 048
     Dates: start: 202103, end: 20210615
  3. ELIQUIS [Suspect]
     Active Substance: APIXABAN
     Indication: Cerebrovascular accident prophylaxis

REACTIONS (4)
  - Myelodysplastic syndrome [Unknown]
  - Cutaneous vasculitis [Recovered/Resolved]
  - Blood creatinine increased [Unknown]
  - Weight decreased [Unknown]

NARRATIVE: CASE EVENT DATE: 20210610
